FAERS Safety Report 9116482 (Version 2)
Quarter: 2013Q1

REPORT INFORMATION
  Report Type: Spontaneous
  Country: US (occurrence: US)
  Receive Date: 20130225
  Receipt Date: 20130318
  Transmission Date: 20140127
  Serious: Yes (Other)
  Sender: FDA-Public Use
  Company Number: US-ELI_LILLY_AND_COMPANY-US201302004755

PATIENT
  Age: 56 Year
  Sex: Male

DRUGS (7)
  1. BYDUREON [Suspect]
     Indication: TYPE 2 DIABETES MELLITUS
     Dosage: 2 MG, WEEKLY (1/W)
     Route: 058
     Dates: start: 20130119, end: 20130122
  2. SIMVASTIN [Concomitant]
     Dosage: 40 MG, QD
     Route: 048
     Dates: start: 20121018
  3. GLYBURIDE [Concomitant]
     Dosage: 6 MG, BID
     Route: 048
     Dates: start: 20120927
  4. NAPROXEN [Concomitant]
     Dosage: 500 MG, EACH EVENING
     Route: 048
     Dates: start: 20120104
  5. LOVAZA [Concomitant]
     Dosage: 2 G, BID
     Route: 048
     Dates: start: 20120326
  6. LOSARTAN [Concomitant]
     Dosage: 50 MG, QD
     Route: 048
     Dates: start: 20110920
  7. PROZAC [Concomitant]
     Dosage: 20 MG, QD
     Route: 048
     Dates: start: 20120228

REACTIONS (1)
  - Thyroid mass [Recovered/Resolved]
